FAERS Safety Report 5051105-6 (Version None)
Quarter: 2006Q3

REPORT INFORMATION
  Report Type: 
  Country: None (occurrence: None)
  Receive Date: 20060714
  Receipt Date: 20060705
  Transmission Date: 20061208
  Serious: Yes (Death, Hospitalization)
  Sender: FDA-Public Use
  Company Number: JP-JNJFOC-20060402069

PATIENT
  Sex: Male

DRUGS (10)
  1. DUROTEP [Suspect]
     Indication: CANCER PAIN
     Route: 062
  2. ISOSORBIDE DINITRATE [Concomitant]
     Indication: CARDIAC FAILURE
     Route: 065
  3. URSODESOXYCHOLIC ACID [Concomitant]
     Indication: CHOLECYSTITIS
     Route: 048
  4. FUROSEMIDE [Concomitant]
     Indication: CARDIAC FAILURE
     Route: 048
  5. AMLODIPINE BESYLATE [Concomitant]
     Indication: HYPERTENSION
     Route: 048
  6. ALLOPURINOL [Concomitant]
     Indication: HYPERURICAEMIA
     Route: 048
  7. SPIRONOLACTONE [Concomitant]
     Indication: CARDIAC FAILURE
     Route: 048
  8. ISOSORBIDE MONONITRATE [Concomitant]
     Indication: CARDIAC FAILURE
     Route: 048
  9. METILDIGOXIN [Concomitant]
     Indication: CARDIAC FAILURE
     Route: 048
  10. DICLOFENAC SODIUM [Concomitant]
     Indication: GALLBLADDER CANCER
     Route: 065

REACTIONS (2)
  - DELIRIUM [None]
  - GALLBLADDER CANCER [None]
